FAERS Safety Report 20880631 (Version 1)
Quarter: 2022Q2

REPORT INFORMATION
  Report Type: Report from Study
  Country: US (occurrence: US)
  Receive Date: 20220526
  Receipt Date: 20220526
  Transmission Date: 20220721
  Serious: Yes (Other)
  Sender: FDA-Public Use
  Company Number: US-JAZZ-2022-US-015918

PATIENT
  Sex: Female

DRUGS (5)
  1. SUNOSI [Suspect]
     Active Substance: SOLRIAMFETOL
     Indication: Product used for unknown indication
  2. XYWAV [Suspect]
     Active Substance: CALCIUM OXYBATE\MAGNESIUM OXYBATE\POTASSIUM OXYBATE\SODIUM OXYBATE
     Indication: Product used for unknown indication
     Dosage: DOSE NOT ADMINISTERED
  3. VYVANSE [Concomitant]
     Active Substance: LISDEXAMFETAMINE DIMESYLATE
  4. ADDERALL [Concomitant]
     Active Substance: AMPHETAMINE ASPARTATE\AMPHETAMINE SULFATE\DEXTROAMPHETAMINE SACCHARATE\DEXTROAMPHETAMINE SULFATE
  5. ATENOLOL [Concomitant]
     Active Substance: ATENOLOL

REACTIONS (11)
  - Syncope [Unknown]
  - Loss of consciousness [Unknown]
  - Presyncope [Unknown]
  - Vertigo [Unknown]
  - Hallucination [Unknown]
  - Ehlers-Danlos syndrome [Unknown]
  - Emotional distress [Unknown]
  - Thinking abnormal [Unknown]
  - Nausea [Unknown]
  - Tachycardia [Unknown]
  - Anxiety disorder [Unknown]
